FAERS Safety Report 4624404-7 (Version None)
Quarter: 2005Q1

REPORT INFORMATION
  Report Type: 
  Country: None (occurrence: None)
  Receive Date: 20050107
  Receipt Date: 20040926
  Transmission Date: 20050727
  Serious: No
  Sender: FDA-Public Use
  Company Number: 234871K04USA

PATIENT
  Sex: Female

DRUGS (3)
  1. REBIF [Suspect]
     Indication: MULTIPLE SCLEROSIS
  2. PNEUMOVAX 23 [Suspect]
  3. INFLUENZA VACCINE [Suspect]

REACTIONS (7)
  - ABASIA [None]
  - COORDINATION ABNORMAL [None]
  - GAIT DISTURBANCE [None]
  - JOINT STIFFNESS [None]
  - OSTEOARTHRITIS [None]
  - PAIN [None]
  - PAIN IN EXTREMITY [None]
